FAERS Safety Report 4616109-3 (Version None)
Quarter: 2005Q1

REPORT INFORMATION
  Report Type: 
  Country: None (occurrence: None)
  Receive Date: 20050323
  Receipt Date: 20050315
  Transmission Date: 20050727
  Serious: Yes (Other)
  Sender: FDA-Public Use
  Company Number: PHEH2005US03163

PATIENT
  Age: 71 Year
  Sex: Female

DRUGS (2)
  1. VITAMINS [Concomitant]
  2. ELIDEL [Suspect]
     Indication: ECZEMA
     Dosage: UNK, BID
     Route: 061
     Dates: start: 20040401, end: 20040701

REACTIONS (3)
  - DRUG INEFFECTIVE [None]
  - ECZEMA [None]
  - SKIN CANCER [None]
